FAERS Safety Report 12429627 (Version 6)
Quarter: 2016Q4

REPORT INFORMATION
  Report Type: Report from Study
  Country: US (occurrence: US)
  Receive Date: 20160602
  Receipt Date: 20161215
  Transmission Date: 20170207
  Serious: Yes (Hospitalization)
  Sender: FDA-Public Use
  Company Number: US-EISAI MEDICAL RESEARCH-E7080-01261-CLI-US

PATIENT
  Age: 60 Year
  Sex: Female
  Weight: 84 kg

DRUGS (32)
  1. TRAMADOL. [Concomitant]
     Active Substance: TRAMADOL
  2. REFRESH P.M. OINT [Concomitant]
  3. LOPRESSOR [Concomitant]
     Active Substance: METOPROLOL TARTRATE
  4. KLOR-CON [Concomitant]
     Active Substance: POTASSIUM CHLORIDE
  5. SYNTHROID [Concomitant]
     Active Substance: LEVOTHYROXINE SODIUM
  6. CLONIDINE. [Concomitant]
     Active Substance: CLONIDINE
  7. PRADAXA [Concomitant]
     Active Substance: DABIGATRAN ETEXILATE MESYLATE
  8. MOTRIN [Concomitant]
     Active Substance: IBUPROFEN
  9. ZOFRAN [Concomitant]
     Active Substance: ONDANSETRON HYDROCHLORIDE
  10. POTASSIUM CHLORIDE. [Concomitant]
     Active Substance: POTASSIUM CHLORIDE
  11. PREDNISOLONE ACETATE. [Concomitant]
     Active Substance: PREDNISOLONE ACETATE
  12. TOBRAMYCIN-DEXAMETHASONE [Concomitant]
     Active Substance: DEXAMETHASONE\TOBRAMYCIN
  13. LENVATINIB [Suspect]
     Active Substance: LENVATINIB
     Indication: THYROID CANCER
     Route: 048
     Dates: start: 20121204, end: 20130619
  14. REGLAN [Concomitant]
     Active Substance: METOCLOPRAMIDE HYDROCHLORIDE
  15. CICLOPIROX. [Concomitant]
     Active Substance: CICLOPIROX
  16. MIRALAX [Concomitant]
     Active Substance: POLYETHYLENE GLYCOL 3350
  17. CATAPRES [Concomitant]
     Active Substance: CLONIDINE HYDROCHLORIDE
  18. LENVATINIB [Suspect]
     Active Substance: LENVATINIB
     Route: 048
     Dates: start: 20140123
  19. HYDROCHLOROTHIAZIDE. [Concomitant]
     Active Substance: HYDROCHLOROTHIAZIDE
  20. LIPITOR [Concomitant]
     Active Substance: ATORVASTATIN CALCIUM
  21. CICLOPIROX. [Concomitant]
     Active Substance: CICLOPIROX
  22. PRILOSEC [Concomitant]
     Active Substance: OMEPRAZOLE MAGNESIUM
  23. CARMOL [Concomitant]
  24. AMBIEN [Concomitant]
     Active Substance: ZOLPIDEM TARTRATE
  25. VITAMIN D3 [Concomitant]
     Active Substance: CHOLECALCIFEROL
  26. GABAPENTIN. [Concomitant]
     Active Substance: GABAPENTIN
  27. LENVATINIB [Suspect]
     Active Substance: LENVATINIB
     Route: 048
     Dates: start: 20130905, end: 20140114
  28. GRANISETRON [Concomitant]
     Active Substance: GRANISETRON
  29. WOMENS MULTIVITAMIN PLUS TABS [Concomitant]
  30. LENVATINIB [Suspect]
     Active Substance: LENVATINIB
     Route: 048
     Dates: start: 20130710, end: 20130721
  31. LISINOPRIL. [Concomitant]
     Active Substance: LISINOPRIL
  32. METFORMIN [Concomitant]
     Active Substance: METFORMIN HYDROCHLORIDE

REACTIONS (7)
  - Tachycardia [Recovered/Resolved]
  - Abdominal pain [Recovered/Resolved]
  - Hypertensive crisis [Recovered/Resolved]
  - Non-cardiac chest pain [Recovered/Resolved]
  - Hypotension [Recovered/Resolved]
  - Upper respiratory tract infection [Recovered/Resolved]
  - Musculoskeletal chest pain [Recovered/Resolved]

NARRATIVE: CASE EVENT DATE: 20130514
